FAERS Safety Report 6604228-1 (Version None)
Quarter: 2010Q1

REPORT INFORMATION
  Report Type: 
  Country: None (occurrence: None)
  Receive Date: 20100226
  Receipt Date: 20091023
  Transmission Date: 20100710
  Serious: No
  Sender: FDA-Public Use
  Company Number: A0796656A

PATIENT
  Age: 41 Year
  Sex: Female
  Weight: 52.3 kg

DRUGS (5)
  1. LAMICTAL CD [Suspect]
     Dosage: 25MG PER DAY
     Route: 048
     Dates: start: 20090701, end: 20090713
  2. METFORMIN HYDROCHLORIDE [Concomitant]
     Dosage: 500MG TWICE PER DAY
     Route: 048
  3. LANTUS [Concomitant]
     Route: 042
  4. HUMALOG [Concomitant]
     Route: 042
  5. TRAMADOL HCL [Concomitant]
     Dosage: 50MG AS REQUIRED
     Route: 048

REACTIONS (17)
  - ABDOMINAL DISCOMFORT [None]
  - BLOOD GLUCOSE DECREASED [None]
  - CHEST PAIN [None]
  - DIARRHOEA [None]
  - DIZZINESS [None]
  - DYSMENORRHOEA [None]
  - DYSPNOEA [None]
  - HEADACHE [None]
  - LYMPHADENOPATHY [None]
  - MIDDLE INSOMNIA [None]
  - MUSCULAR WEAKNESS [None]
  - NASAL CONGESTION [None]
  - NAUSEA [None]
  - OROPHARYNGEAL PAIN [None]
  - RASH [None]
  - RASH PRURITIC [None]
  - TREMOR [None]
